FAERS Safety Report 12384771 (Version 1)
Quarter: 2016Q2

REPORT INFORMATION
  Report Type: Spontaneous
  Country: US (occurrence: None)
  Receive Date: 20160518
  Receipt Date: 20160518
  Transmission Date: 20160815
  Serious: Yes (Life-Threatening, Hospitalization)
  Sender: FDA-Public Use
  Company Number: None

PATIENT
  Age: 68 Year
  Sex: Male
  Weight: 88.9 kg

DRUGS (2)
  1. HEPARIN [Suspect]
     Active Substance: HEPARIN SODIUM
     Indication: SURGERY
     Route: 058
     Dates: start: 20160320, end: 20160326
  2. HEPARIN [Suspect]
     Active Substance: HEPARIN SODIUM
     Indication: CARDIOVASCULAR DISORDER
     Route: 058
     Dates: start: 20160320, end: 20160326

REACTIONS (5)
  - Heparin-induced thrombocytopenia [None]
  - Cerebral artery occlusion [None]
  - Chest pain [None]
  - Hypertensive emergency [None]
  - Back pain [None]

NARRATIVE: CASE EVENT DATE: 20160330
